FAERS Safety Report 8091458-8 (Version None)
Quarter: 2012Q1

REPORT INFORMATION
  Report Type: 
  Country: None (occurrence: None)
  Receive Date: 20120129
  Receipt Date: 20111221
  Transmission Date: 20120608
  Serious: Yes (Hospitalization, Other)
  Sender: FDA-Public Use
  Company Number: PR-ABBOTT-11P-131-0882513-00

PATIENT
  Age: 47 Year
  Sex: Female

DRUGS (13)
  1. PREDNISONE TAB [Concomitant]
     Indication: RHEUMATOID ARTHRITIS
     Dates: start: 20101101
  2. HUMIRA [Suspect]
     Indication: RHEUMATOID ARTHRITIS
     Route: 058
     Dates: start: 20110929, end: 20111201
  3. AMBIEN [Concomitant]
     Indication: INSOMNIA
     Dates: start: 20101130
  4. CATAFLAM [Concomitant]
     Indication: RHEUMATOID ARTHRITIS
     Dates: start: 20110309
  5. PLAQUENIL [Concomitant]
     Indication: RHEUMATOID ARTHRITIS
     Dates: start: 20091101
  6. SYNTHROID [Concomitant]
     Indication: THYROID OPERATION
     Dates: start: 20000101
  7. FLEXERIL [Concomitant]
     Indication: FIBROMYALGIA
     Dates: start: 20110309
  8. HUMIRA [Suspect]
     Route: 058
  9. FOSAMAX [Concomitant]
     Indication: OSTEOPENIA
     Dates: start: 20110901
  10. NEURONTIN [Concomitant]
     Indication: FIBROMYALGIA
     Dates: start: 20110601
  11. AVAPRO [Concomitant]
     Indication: HYPERTENSION
     Dates: start: 20110901
  12. HYDROCHLOROTHIAZIDE [Concomitant]
     Indication: HYPERTENSION
     Dates: start: 20110901
  13. ARAVA [Concomitant]
     Indication: RHEUMATOID ARTHRITIS
     Dates: start: 20101101

REACTIONS (1)
  - APPENDICITIS [None]
